FAERS Safety Report 8923906 (Version 3)
Quarter: 2013Q1

REPORT INFORMATION
  Report Type: Report from Study
  Country: NL (occurrence: NL)
  Receive Date: 20121127
  Receipt Date: 20130107
  Transmission Date: 20140127
  Serious: Yes (Death, Hospitalization)
  Sender: FDA-Public Use
  Company Number: NL-GENZYME-CLOF-1002392

PATIENT
  Age: 68 Year
  Sex: Male
  Weight: 67 kg

DRUGS (2)
  1. EVOLTRA [Suspect]
     Indication: ACUTE LYMPHOCYTIC LEUKAEMIA
     Dosage: 57 MG, QD
     Route: 042
     Dates: start: 20120606, end: 20120610
  2. EVOLTRA [Suspect]
     Dosage: 53 MG, QD
     Route: 042
     Dates: start: 20120830, end: 20120903

REACTIONS (4)
  - Atrial flutter [Recovered/Resolved]
  - Acute lymphocytic leukaemia recurrent [Fatal]
  - Arthralgia [Fatal]
  - Pyrexia [Fatal]
